FAERS Safety Report 7756909-4 (Version None)
Quarter: 2011Q3

REPORT INFORMATION
  Report Type: 
  Country: None (occurrence: None)
  Receive Date: 20110916
  Receipt Date: 20110913
  Transmission Date: 20111222
  Serious: Yes (Other)
  Sender: FDA-Public Use
  Company Number: US-GLAXOSMITHKLINE-A0944457A

PATIENT
  Age: 30 Year
  Sex: Female

DRUGS (3)
  1. ANTI-ANXIETY MED- NAME UNKNOWN [Concomitant]
  2. LAMICTAL [Suspect]
     Indication: AFFECTIVE DISORDER
     Route: 048
     Dates: start: 20110801
  3. WELLBUTRIN [Suspect]
     Indication: DEPRESSION
     Route: 065

REACTIONS (2)
  - GRAND MAL CONVULSION [None]
  - CRYING [None]
